FAERS Safety Report 5196954-9 (Version None)
Quarter: 2006Q4

REPORT INFORMATION
  Report Type: 
  Country: None (occurrence: None)
  Receive Date: 20061227
  Receipt Date: 20061211
  Transmission Date: 20070319
  Serious: Yes (Other)
  Sender: FDA-Public Use
  Company Number: 2006152743

PATIENT
  Age: 36 Year
  Sex: Female

DRUGS (6)
  1. CLINDAMYCIN HYDROCHLORIDE [Suspect]
     Dosage: 6 DF, ORAL
     Route: 048
     Dates: start: 20060415
  2. RAMIPRIL [Suspect]
     Dosage: 5 MG,  ORAL
     Route: 048
     Dates: start: 20060101
  3. OFLOXACIN [Suspect]
     Dosage: 2DF, ORAL
     Route: 048
     Dates: start: 20060415
  4. INSULIN [Suspect]
     Dosage: SUBCUTANEOUS
     Route: 058
     Dates: start: 20060101
  5. XALATAN [Suspect]
     Dosage: OPHTHALMIC
     Dates: start: 20060101
  6. COSOPT [Suspect]
     Dosage: OPHTHALMIC
     Route: 047
     Dates: start: 20060101

REACTIONS (2)
  - DRUG EXPOSURE DURING PREGNANCY [None]
  - INTRA-UTERINE DEATH [None]
